FAERS Safety Report 8476736-2 (Version None)
Quarter: 2012Q2

REPORT INFORMATION
  Report Type: 
  Country: None (occurrence: None)
  Receive Date: 20120628
  Receipt Date: 20120622
  Transmission Date: 20120825
  Serious: Yes (Other)
  Sender: FDA-Public Use
  Company Number: ES-ABBOTT-12P-144-0949723-00

PATIENT
  Age: 6 Year
  Sex: Female

DRUGS (3)
  1. LEVETIRACETAM [Suspect]
     Dosage: DAILY
     Route: 065
  2. VALPROIC ACID [Suspect]
     Indication: STATUS EPILEPTICUS
     Route: 065
  3. LEVETIRACETAM [Suspect]
     Indication: STATUS EPILEPTICUS
     Dosage: DAILY
     Route: 065

REACTIONS (17)
  - VOMITING [None]
  - AGGRESSION [None]
  - AUTISM [None]
  - EMOTIONAL DISORDER [None]
  - CLUMSINESS [None]
  - HEADACHE [None]
  - SLOW SPEECH [None]
  - EXPRESSIVE LANGUAGE DISORDER [None]
  - MOVEMENT DISORDER [None]
  - DECREASED EYE CONTACT [None]
  - ASTERIXIS [None]
  - FALL [None]
  - DISTURBANCE IN SOCIAL BEHAVIOUR [None]
  - TREMOR [None]
  - ABNORMAL BEHAVIOUR [None]
  - DYSPHEMIA [None]
  - HYPOKINESIA [None]
